FAERS Safety Report 5780183-1 (Version None)
Quarter: 2008Q2

REPORT INFORMATION
  Report Type: 
  Country: None (occurrence: None)
  Receive Date: 20080620
  Receipt Date: 20080611
  Transmission Date: 20081010
  Serious: Yes (Hospitalization, Other)
  Sender: FDA-Public Use
  Company Number: FR-JNJFOC-20080503333

PATIENT
  Sex: Male
  Weight: 49 kg

DRUGS (2)
  1. CONCERTA LP [Suspect]
     Indication: DEPRESSION
     Route: 048
  2. CONCERTA LP [Suspect]
     Indication: ATTENTION DEFICIT/HYPERACTIVITY DISORDER
     Route: 048

REACTIONS (2)
  - ISCHAEMIC STROKE [None]
  - PALPITATIONS [None]
